FAERS Safety Report 5068351-8 (Version None)
Quarter: 2006Q3

REPORT INFORMATION
  Report Type: 
  Country: None (occurrence: None)
  Receive Date: 20060802
  Receipt Date: 20050811
  Transmission Date: 20061208
  Serious: No
  Sender: FDA-Public Use
  Company Number: US-BRISTOL-MYERS SQUIBB COMPANY-13073820

PATIENT
  Age: 81 Year
  Sex: Female

DRUGS (1)
  1. COUMADIN [Suspect]
     Indication: ATRIAL FIBRILLATION
     Dosage: 2 MG ALTERNATING WITH 3 MG DAILY

REACTIONS (4)
  - ANOREXIA [None]
  - EPISTAXIS [None]
  - NAUSEA [None]
  - WEIGHT DECREASED [None]
